FAERS Safety Report 5468901-3 (Version None)
Quarter: 2007Q3

REPORT INFORMATION
  Report Type: 
  Country: None (occurrence: None)
  Receive Date: 20070926
  Receipt Date: 20070917
  Transmission Date: 20080115
  Serious: Yes (Death, Life-Threatening, Hospitalization, Other)
  Sender: FDA-Public Use
  Company Number: DE-SHR-DE-2007-031313

PATIENT
  Age: 70 Year
  Sex: Female
  Weight: 76 kg

DRUGS (2)
  1. FLUDARA [Suspect]
     Dosage: 50 MG, 6 CYCLES (DAY 1-5)
     Route: 042
     Dates: start: 20070201, end: 20070501
  2. ENDOXAN [Suspect]
     Dosage: 200 MG, 6 CYCLES (DAY 1-3)
     Dates: start: 20070201, end: 20070501

REACTIONS (8)
  - BACTERAEMIA [None]
  - BASILAR ARTERY THROMBOSIS [None]
  - BONE MARROW FAILURE [None]
  - BRONCHOPULMONARY ASPERGILLOSIS [None]
  - CEREBRAL INFARCTION [None]
  - IMMUNOGLOBULINS DECREASED [None]
  - PANCYTOPENIA [None]
  - STAPHYLOCOCCAL SEPSIS [None]
